FAERS Safety Report 12522919 (Version 3)
Quarter: 2017Q3

REPORT INFORMATION
  Report Type: Spontaneous
  Country: US (occurrence: US)
  Receive Date: 20160701
  Receipt Date: 20170920
  Transmission Date: 20171127
  Serious: Yes (Death, Life-Threatening, Hospitalization, Other)
  Sender: FDA-Public Use
  Company Number: US-SAOL THERAPEUTICS-2016SAO00012

PATIENT
  Age: 62 Year
  Sex: Male

DRUGS (16)
  1. DILAUDID [Suspect]
     Active Substance: HYDROMORPHONE HYDROCHLORIDE
     Indication: MUSCLE SPASTICITY
     Dosage: 6.003 MG DAILY
     Route: 037
  2. BACLOFEN. [Suspect]
     Active Substance: BACLOFEN
     Indication: MUSCLE SPASTICITY
     Dosage: 450.2 ?G DAILY
     Route: 037
  3. CLONDINE [Suspect]
     Active Substance: CLONIDINE
     Dosage: 2 ?G DAILY
  4. BUPIVICAINE [Suspect]
     Active Substance: BUPIVACAINE
     Indication: MUSCLE SPASTICITY
     Dosage: 9.004 MG DAILY
     Route: 037
  5. PRILOSEC [Concomitant]
     Active Substance: OMEPRAZOLE MAGNESIUM
  6. ASA [Concomitant]
     Active Substance: ASPIRIN
  7. NEURONTIN [Concomitant]
     Active Substance: GABAPENTIN
  8. GLUCOPHAGE [Concomitant]
     Active Substance: METFORMIN HYDROCHLORIDE
  9. COMPOUNDED BACLOFEN [Suspect]
     Active Substance: BACLOFEN
     Indication: MUSCLE SPASTICITY
  10. MIRALAX [Concomitant]
     Active Substance: POLYETHYLENE GLYCOL 3350
  11. CLONDINE [Suspect]
     Active Substance: CLONIDINE
     Indication: MUSCLE SPASTICITY
     Dosage: 100.03 ?G DAILY
     Route: 037
  12. ENEMEEZ PLUS [Concomitant]
     Active Substance: BENZOCAINE\DOCUSATE SODIUM
  13. BACLOFEN. [Suspect]
     Active Substance: BACLOFEN
     Indication: MUSCLE SPASTICITY
     Dosage: 9 ?G, \DAY
     Route: 037
  14. DILAUDID [Suspect]
     Active Substance: HYDROMORPHONE HYDROCHLORIDE
     Dosage: 0.120 MG DAILY
  15. BUPIVICAINE [Suspect]
     Active Substance: BUPIVACAINE
     Dosage: 0.18 MG DAILY
  16. CYMBALTA [Concomitant]
     Active Substance: DULOXETINE HYDROCHLORIDE

REACTIONS (7)
  - Drug withdrawal syndrome [Unknown]
  - Overdose [Unknown]
  - Feeling abnormal [Unknown]
  - Respiratory arrest [Unknown]
  - Device malfunction [Fatal]
  - Blood pressure fluctuation [Unknown]
  - Death [Fatal]

NARRATIVE: CASE EVENT DATE: 2016
